FAERS Safety Report 20643419 (Version 1)
Quarter: 2022Q1

REPORT INFORMATION
  Report Type: Spontaneous
  Country: US (occurrence: None)
  Receive Date: 20220326
  Receipt Date: 20220326
  Transmission Date: 20220423
  Serious: Yes (unspecified)
  Sender: FDA-Public Use
  Company Number: None

PATIENT
  Age: 38 Year
  Sex: Male
  Weight: 63 kg

DRUGS (2)
  1. FINASTERIDE [Suspect]
     Active Substance: FINASTERIDE
     Indication: Alopecia
     Dosage: OTHER QUANTITY : 4 SPRAY(S);?FREQUENCY : DAILY;?
     Route: 061
     Dates: start: 20220310, end: 20220315
  2. Men^s Vitamins [Concomitant]

REACTIONS (5)
  - Sleep disorder [None]
  - Sexual dysfunction [None]
  - Testicular pain [None]
  - Headache [None]
  - Back pain [None]

NARRATIVE: CASE EVENT DATE: 20220312
